FAERS Safety Report 9322771 (Version 1)
Quarter: 2013Q2

REPORT INFORMATION
  Report Type: Spontaneous
  Country: DE (occurrence: DE)
  Receive Date: 20130601
  Receipt Date: 20130601
  Transmission Date: 20140414
  Serious: Yes (Life-Threatening, Hospitalization, Other)
  Sender: FDA-Public Use
  Company Number: DE-ROCHE-GNE213766

PATIENT
  Age: 9 Year
  Sex: Male
  Weight: 26.53 kg

DRUGS (3)
  1. MABTHERA [Suspect]
     Indication: IMMUNODEFICIENCY
     Dosage: 375 ML, 1/WEEK
     Route: 042
  2. OCTAGAM [Concomitant]
  3. PREDNISONE [Concomitant]
     Indication: AUTOIMMUNE HAEMOLYTIC ANAEMIA
     Dosage: 20 MG, BID
     Route: 065
     Dates: end: 20050414

REACTIONS (3)
  - Status epilepticus [Recovering/Resolving]
  - Encephalitis [Unknown]
  - Posterior reversible encephalopathy syndrome [Unknown]
